FAERS Safety Report 19436366 (Version 1)
Quarter: 2021Q2

REPORT INFORMATION
  Report Type: Spontaneous
  Country: IT (occurrence: IT)
  Receive Date: 20210618
  Receipt Date: 20210618
  Transmission Date: 20210717
  Serious: Yes (Life-Threatening, Hospitalization, Other)
  Sender: FDA-Public Use
  Company Number: IT-MACLEODS PHARMACEUTICALS US LTD-MAC2021031570

PATIENT

DRUGS (10)
  1. CARVEDILOL. [Concomitant]
     Active Substance: CARVEDILOL
     Indication: PRODUCT USED FOR UNKNOWN INDICATION
     Dosage: UNK
     Route: 065
  2. LIDOCAINE. [Suspect]
     Active Substance: LIDOCAINE
     Indication: CARDIOGENIC SHOCK
     Dosage: UNK
     Route: 065
     Dates: start: 2020
  3. ESMOLOL [Suspect]
     Active Substance: ESMOLOL HYDROCHLORIDE
     Indication: CARDIOGENIC SHOCK
  4. AMIODARONE [Suspect]
     Active Substance: AMIODARONE
     Indication: CARDIOGENIC SHOCK
  5. ESMOLOL [Suspect]
     Active Substance: ESMOLOL HYDROCHLORIDE
     Indication: IMMUNE-MEDIATED MYOCARDITIS
     Dosage: UNK
     Route: 065
     Dates: start: 2020
  6. LIDOCAINE. [Suspect]
     Active Substance: LIDOCAINE
     Indication: IMMUNE-MEDIATED MYOCARDITIS
  7. LIDOCAINE. [Suspect]
     Active Substance: LIDOCAINE
     Indication: VENTRICULAR ARRHYTHMIA
  8. AMIODARONE [Suspect]
     Active Substance: AMIODARONE
     Indication: VENTRICULAR ARRHYTHMIA
  9. AMIODARONE [Suspect]
     Active Substance: AMIODARONE
     Indication: IMMUNE-MEDIATED MYOCARDITIS
     Dosage: UNK
     Route: 042
     Dates: start: 2020
  10. ESMOLOL [Suspect]
     Active Substance: ESMOLOL HYDROCHLORIDE
     Indication: VENTRICULAR ARRHYTHMIA

REACTIONS (1)
  - Drug ineffective [Recovered/Resolved]

NARRATIVE: CASE EVENT DATE: 2020
